FAERS Safety Report 5942776-8 (Version None)
Quarter: 2008Q4

REPORT INFORMATION
  Report Type: 
  Country: None (occurrence: None)
  Receive Date: 20081103
  Receipt Date: 20081017
  Transmission Date: 20090506
  Serious: Yes (Hospitalization, Other)
  Sender: FDA-Public Use
  Company Number: 1022556-2008-00660

PATIENT
  Sex: Female

DRUGS (1)
  1. ICY HOT BACK PATCH [Suspect]
     Indication: ANALGESIA
     Dosage: 5% MENTHOL PATCH, 1X
     Dates: start: 20081016

REACTIONS (1)
  - HYPERSENSITIVITY [None]
